FAERS Safety Report 26168936 (Version 2)
Quarter: 2025Q4

REPORT INFORMATION
  Report Type: Spontaneous
  Country: JP (occurrence: JP)
  Receive Date: 20251217
  Receipt Date: 20251230
  Transmission Date: 20260118
  Serious: Yes (Other)
  Sender: UCB
  Company Number: JP-UCBJ-CD202516422UCBPHAPROD

PATIENT
  Age: 7 Decade

DRUGS (3)
  1. CIMZIA [Suspect]
     Active Substance: CERTOLIZUMAB PEGOL
     Indication: Rheumatoid arthritis
     Dosage: UNK
  2. METHOTREXATE [Concomitant]
     Active Substance: METHOTREXATE
     Indication: Rheumatoid arthritis
     Dosage: UNK
  3. ETODOLAC [Concomitant]
     Active Substance: ETODOLAC
     Indication: Rheumatoid arthritis
     Dosage: UNK

REACTIONS (1)
  - Rheumatoid arthritis [Recovered/Resolved]
